FAERS Safety Report 14755207 (Version 1)
Quarter: 2018Q2

REPORT INFORMATION
  Report Type: Spontaneous
  Country: US (occurrence: US)
  Receive Date: 20180413
  Receipt Date: 20180413
  Transmission Date: 20180711
  Serious: No
  Sender: FDA-Public Use
  Company Number: US-UNITED THERAPEUTICS-UNT-2018-002806

PATIENT
  Sex: Female

DRUGS (2)
  1. REMODULIN [Suspect]
     Active Substance: TREPROSTINIL
     Indication: PULMONARY ARTERIAL HYPERTENSION
     Dosage: 0.0255 ?G/KG, CONTINUING
     Route: 058
     Dates: start: 20170824
  2. REMODULIN [Suspect]
     Active Substance: TREPROSTINIL
     Dosage: 0.03 ?G/KG, CONTINUING
     Route: 058

REACTIONS (12)
  - Pain in jaw [Not Recovered/Not Resolved]
  - Joint stiffness [Not Recovered/Not Resolved]
  - Asthma [Unknown]
  - Infusion site nodule [Unknown]
  - Dyspnoea [Unknown]
  - Pulmonary arterial hypertension [Unknown]
  - Infusion site infection [Unknown]
  - Infusion site pruritus [Recovering/Resolving]
  - Infusion site induration [Unknown]
  - Headache [Unknown]
  - Infusion site discharge [Unknown]
  - Pneumonia [Unknown]

NARRATIVE: CASE EVENT DATE: 20180223
